FAERS Safety Report 11507104 (Version 1)
Quarter: 2015Q3

REPORT INFORMATION
  Report Type: Spontaneous
  Country: US (occurrence: US)
  Receive Date: 20150915
  Receipt Date: 20150915
  Transmission Date: 20151125
  Serious: No
  Sender: FDA-Public Use
  Company Number: US-BANPHARM-20143055

PATIENT
  Age: 42 Year
  Sex: Female
  Weight: 74.84 kg

DRUGS (2)
  1. CORTIZONE 10 [Concomitant]
     Active Substance: HYDROCORTISONE
  2. ZYRTEC [Suspect]
     Active Substance: CETIRIZINE HYDROCHLORIDE
     Indication: URTICARIA
     Dosage: 1 DF, QD,
     Route: 048

REACTIONS (1)
  - Drug ineffective [Unknown]
